FAERS Safety Report 9250799 (Version 1)
Quarter: 2013Q1

REPORT INFORMATION
  Report Type: Spontaneous
  Country: US (occurrence: None)
  Receive Date: 20130305
  Receipt Date: 20130305
  Transmission Date: 20140127
  Serious: Yes (Other)
  Sender: FDA-Public Use
  Company Number: 163-21880-12071166

PATIENT
  Age: 65 Year
  Sex: Female
  Weight: 60.1 kg

DRUGS (8)
  1. REVLIMID [Suspect]
     Indication: PLASMA CELL MYELOMA
     Dosage: 21 IN 28 D
     Route: 048
     Dates: start: 201205
  2. DEXAMETHASONE (DEXAMETHASONE) [Concomitant]
  3. OXYCODONE (OXYCODONE) [Concomitant]
  4. HYDROCODONE/ APAP (VICODIN) [Concomitant]
  5. ASPIRIN (ACETYLSALICYLIC ACID) [Concomitant]
  6. LEVOTHYROXINE (LEVOTHYROXINE) [Concomitant]
  7. METOPROLOL (METOPROLOL) [Concomitant]
  8. AREDIA (PAMIDRONATE DISODIUM) [Concomitant]

REACTIONS (5)
  - Gastric ulcer haemorrhage [None]
  - Abdominal distension [None]
  - Abdominal pain [None]
  - Diarrhoea [None]
  - Gingival pain [None]
